FAERS Safety Report 10410233 (Version 2)
Quarter: 2014Q3

REPORT INFORMATION
  Report Type: Spontaneous
  Country: IT (occurrence: None)
  Receive Date: 20140703
  Receipt Date: 20140811
  Transmission Date: 20150326
  Serious: Yes (Hospitalization)
  Sender: FDA-Public Use
  Company Number: AUR-APL-2014-06171

PATIENT
  Age: 55 Year
  Sex: Male

DRUGS (1)
  1. CEFTRIAXONE. [Suspect]
     Active Substance: CEFTRIAXONE
     Indication: BRONCHITIS
     Dosage: 1 G, (TOTAL)
     Route: 030
     Dates: start: 20131205, end: 20131205

REACTIONS (4)
  - Palpitations [None]
  - Blood pressure increased [None]
  - Localised oedema [None]
  - Dyspepsia [None]

NARRATIVE: CASE EVENT DATE: 20131205
